FAERS Safety Report 8829236 (Version 3)
Quarter: 2012Q4

REPORT INFORMATION
  Report Type: Report from Study
  Country: CA (occurrence: CA)
  Receive Date: 20121008
  Receipt Date: 20121213
  Transmission Date: 20130627
  Serious: Yes (Hospitalization, Other)
  Sender: FDA-Public Use
  Company Number: CA-ROCHE-1138690

PATIENT
  Age: 88 Year
  Sex: Female

DRUGS (5)
  1. VEMURAFENIB [Suspect]
     Indication: METASTATIC MALIGNANT MELANOMA
     Route: 042
     Dates: start: 20120918, end: 2012
  2. VEMURAFENIB [Suspect]
     Route: 065
     Dates: start: 20121120
  3. THIAZIDE [Concomitant]
  4. ATORVASTATIN [Concomitant]
  5. PANTOLOC [Concomitant]

REACTIONS (4)
  - Dehydration [Not Recovered/Not Resolved]
  - Dysgeusia [Not Recovered/Not Resolved]
  - Visual impairment [Not Recovered/Not Resolved]
  - Blood pressure increased [Unknown]
